FAERS Safety Report 9461873 (Version 1)
Quarter: 2013Q3

REPORT INFORMATION
  Report Type: Report from Study
  Country: AU (occurrence: AU)
  Receive Date: 20130816
  Receipt Date: 20130816
  Transmission Date: 20140515
  Serious: Yes (Other)
  Sender: FDA-Public Use
  Company Number: PHHY2013AU015990

PATIENT
  Sex: Female

DRUGS (17)
  1. SANDOSTATIN LAR [Suspect]
     Indication: ACROMEGALY
     Dosage: 30 MG, EVERY 3 WEEKS
     Route: 030
  2. CABERGOLINE [Suspect]
     Dosage: 0.5 MG, TWICE WEEKLY
  3. LANREOTIDE [Suspect]
     Dosage: 120 MG, 4 WEEKLY
  4. HYSONE [Concomitant]
     Dosage: 4 MG X 4 DAILY
  5. PROLIA [Concomitant]
     Dosage: 60 MG, EVERY 6 MONTHLY
  6. CALCIUM [Concomitant]
     Dosage: 600 MG, DAILY
  7. VITAMIN D [Concomitant]
     Dosage: 400 UKN, UNK
  8. NEXIUM//ESOMEPRAZOLE SODIUM [Concomitant]
     Dosage: 60 MG X 3 DAILY
  9. OROXINE [Concomitant]
     Dosage: 150 UG AND 100 UG ALTERNATE NIGHT
  10. OROXINE [Concomitant]
     Dosage: 150 UG AND 100 UG ALTERNATE NIGHT
  11. PRINIVIL [Concomitant]
     Dosage: 5 MG, DAILY
  12. PANAMAX [Concomitant]
     Dosage: 500 MG, AS REQUIRED
  13. VIT C [Concomitant]
     Dosage: 500 MG, DAILY
  14. VIT B COMPLEX [Concomitant]
     Dosage: 1 DF, DAILY
  15. HYDROCORTISONE [Concomitant]
     Dosage: 20 MG, DAILY
  16. THYROXINE [Concomitant]
     Dosage: 100/150, UKN
  17. RISEDRONATE [Concomitant]
     Dosage: UNK UKN, UNK

REACTIONS (3)
  - Pancreatic insufficiency [Unknown]
  - Malabsorption [Unknown]
  - Drug ineffective [Unknown]
